FAERS Safety Report 5218963-3 (Version None)
Quarter: 2007Q1

REPORT INFORMATION
  Report Type: 
  Country: None (occurrence: None)
  Receive Date: 20070123
  Receipt Date: 20060814
  Transmission Date: 20070707
  Serious: Yes (Other)
  Sender: FDA-Public Use
  Company Number: 2006099950

PATIENT
  Age: 6 Year
  Sex: Female

DRUGS (2)
  1. ZYRTEC [Suspect]
     Indication: DRUG USE FOR UNKNOWN INDICATION
     Dosage: 10 MG(10 MG, 1 IN 1 D), UNKNOWN
  2. ZYPREXA [Suspect]
     Indication: DRUG USE FOR UNKNOWN INDICATION
     Dosage: 15 MG(15 MG,1 IN 1 D), UNKNOWN

REACTIONS (7)
  - DEPENDENCE [None]
  - DRUG DISPENSING ERROR [None]
  - HALLUCINATION [None]
  - PARANOIA [None]
  - SCHOOL REFUSAL [None]
  - WEIGHT INCREASED [None]
  - WRONG DRUG ADMINISTERED [None]
